FAERS Safety Report 17220222 (Version 2)
Quarter: 2020Q1

REPORT INFORMATION
  Report Type: Spontaneous
  Country: JP (occurrence: JP)
  Receive Date: 20191231
  Receipt Date: 20200124
  Transmission Date: 20200409
  Serious: Yes (Other)
  Sender: FDA-Public Use
  Company Number: JP-TAKEDA-2019TJP030793

PATIENT
  Age: 80 Year
  Sex: Female

DRUGS (8)
  1. LENDORMIN [Concomitant]
     Active Substance: BROTIZOLAM
     Dosage: UNK, DOSAGE IS UNKNOWN
     Route: 048
  2. ACONITE [Concomitant]
     Active Substance: ACONITUM NAPELLUS\HOMEOPATHICS
     Dosage: UNK, DOSAGE IS UNKNOWN
     Route: 048
  3. BLOPRESS TABLETS 4 [Suspect]
     Active Substance: CANDESARTAN CILEXETIL
     Indication: PRODUCT USED FOR UNKNOWN INDICATION
     Dosage: UNK, DOSAGE IS UNKNOWN
     Route: 048
  4. BLOPRESS TABLETS 2 [Suspect]
     Active Substance: CANDESARTAN CILEXETIL
     Indication: PRODUCT USED FOR UNKNOWN INDICATION
     Dosage: UNK, DOSAGE IS UNKNOWN
     Route: 048
  5. TAKEPRON OD TABLETS 15 [Suspect]
     Active Substance: LANSOPRAZOLE
     Indication: PRODUCT USED FOR UNKNOWN INDICATION
     Dosage: UNK, DOSAGE IS UNKNOWN
     Route: 048
     Dates: start: 201912
  6. ADONA [Concomitant]
     Dosage: DOSAGE IS UNKNOWN
     Route: 048
  7. RIMATIL [Concomitant]
     Active Substance: BUCILLAMINE
     Dosage: UNK, DOSAGE IS UNKNOWN
     Route: 048
  8. VITANEURIN CAPSULES 25 [Suspect]
     Active Substance: VITAMIN B
     Indication: PRODUCT USED FOR UNKNOWN INDICATION
     Dosage: UNKDOSAGE IS UNKNOWN1CAP = 25MG FURSULTIAMINE
     Route: 048

REACTIONS (3)
  - Chromaturia [Unknown]
  - Hypoaesthesia [Unknown]
  - Rhabdomyolysis [Unknown]

NARRATIVE: CASE EVENT DATE: 201912
